FAERS Safety Report 8486339-1 (Version None)
Quarter: 2012Q3

REPORT INFORMATION
  Report Type: 
  Country: None (occurrence: None)
  Receive Date: 20120703
  Receipt Date: 20120626
  Transmission Date: 20120928
  Serious: Yes (Congenital Anomaly)
  Sender: FDA-Public Use
  Company Number: US-GLAXOSMITHKLINE-A0979856A

PATIENT
  Sex: Male

DRUGS (10)
  1. MULTI-VITAMINS [Concomitant]
     Route: 064
  2. AMITRIPTYLINE HCL [Concomitant]
     Route: 064
  3. PAXIL [Suspect]
     Indication: PRODUCT USED FOR UNKNOWN INDICATION
     Route: 064
  4. TIGAN [Concomitant]
     Route: 064
  5. BUSPAR [Concomitant]
     Route: 064
  6. AZMACORT [Concomitant]
     Route: 064
  7. ACCOLATE [Concomitant]
     Route: 064
  8. PHENERGAN HCL [Concomitant]
     Route: 064
  9. PROVENTIL [Concomitant]
     Route: 064
  10. FOLIC ACID [Concomitant]
     Route: 064

REACTIONS (3)
  - PATENT DUCTUS ARTERIOSUS [None]
  - ATRIAL SEPTAL DEFECT [None]
  - FOETAL EXPOSURE DURING PREGNANCY [None]
